FAERS Safety Report 8791211 (Version 1)
Quarter: 2012Q4

REPORT INFORMATION
  Report Type: Spontaneous
  Country: US (occurrence: None)
  Receive Date: 20120913
  Receipt Date: 20120913
  Transmission Date: 20130627
  Serious: Yes (Disabling, Other)
  Sender: FDA-Public Use
  Company Number: None

PATIENT
  Age: 80 Year
  Sex: Female

DRUGS (1)
  1. ACIPHEX [Suspect]
     Indication: GASTROESOPHAGEAL REFLUX DISEASE
     Dosage: 1 tablet 2 a day
     Dates: start: 201103, end: 201207

REACTIONS (3)
  - Drug ineffective [None]
  - Heart rate increased [None]
  - Chronic obstructive pulmonary disease [None]
